FAERS Safety Report 7643719-1 (Version None)
Quarter: 2011Q3

REPORT INFORMATION
  Report Type: 
  Country: None (occurrence: None)
  Receive Date: 20110729
  Receipt Date: 20110718
  Transmission Date: 20111222
  Serious: Yes (Other)
  Sender: FDA-Public Use
  Company Number: US-RB-026940-11

PATIENT
  Age: 71 Year
  Sex: Male

DRUGS (1)
  1. MUCINEX D [Suspect]
     Indication: PRODUCT USED FOR UNKNOWN INDICATION
     Route: 048

REACTIONS (5)
  - FLUSHING [None]
  - INSOMNIA [None]
  - AGITATION [None]
  - HYPERTENSION [None]
  - HEART RATE INCREASED [None]
